FAERS Safety Report 7032612-3 (Version None)
Quarter: 2010Q4

REPORT INFORMATION
  Report Type: 
  Country: None (occurrence: None)
  Receive Date: 20101007
  Receipt Date: 20100928
  Transmission Date: 20110411
  Serious: Yes (Hospitalization, Other)
  Sender: FDA-Public Use
  Company Number: US-ROCHE-730143

PATIENT
  Sex: Female
  Weight: 62.3 kg

DRUGS (6)
  1. XELODA [Suspect]
     Dosage: FREQUENCY: BID X 14 DAYS, OTHER INDICATION:METASTATIC BREAST CANCER
     Route: 048
     Dates: start: 20100715, end: 20100728
  2. XELODA [Suspect]
     Dosage: DOSE DECREASED; FREQUENCY: BID X 14 DAYS
     Route: 048
     Dates: start: 20100810, end: 20100928
  3. OMEPRAZOLE [Concomitant]
     Dosage: TAKEN AS NECESSARY (PRN)
  4. ATIVAN [Concomitant]
     Dosage: TAKEN AS NECESSARY (PRN)
  5. ZYRTEC [Concomitant]
     Dosage: TAKEN DAILY AS NECESSARY (PRN)
  6. ZOFRAN [Concomitant]

REACTIONS (6)
  - ABDOMINAL PAIN [None]
  - BILIARY DILATATION [None]
  - LIVER FUNCTION TEST ABNORMAL [None]
  - PALMAR-PLANTAR ERYTHRODYSAESTHESIA SYNDROME [None]
  - PANCREATIC ENZYMES INCREASED [None]
  - PANCREATITIS [None]
